FAERS Safety Report 23459197 (Version 2)
Quarter: 2025Q4

REPORT INFORMATION
  Report Type: Spontaneous
  Country: EU (occurrence: EU)
  Receive Date: 20240131
  Receipt Date: 20251215
  Transmission Date: 20260118
  Serious: No
  Sender: SANDOZ
  Company Number: EU-ABBVIE-5447099

PATIENT
  Age: 42 Year
  Sex: Male

DRUGS (2)
  1. ADALIMUMAB [Suspect]
     Active Substance: ADALIMUMAB
     Indication: Product used for unknown indication
     Dosage: UNK
     Route: 058
     Dates: start: 2014
  2. ADALIMUMAB [Suspect]
     Active Substance: ADALIMUMAB
     Indication: Crohn^s disease

REACTIONS (5)
  - Subileus [Unknown]
  - Stenosis [Unknown]
  - Inflammation [Unknown]
  - Drug specific antibody present [Unknown]
  - Drug level decreased [Unknown]
